FAERS Safety Report 9172119 (Version 2)
Quarter: 2013Q2

REPORT INFORMATION
  Report Type: Spontaneous
  Country: ES (occurrence: ES)
  Receive Date: 20130319
  Receipt Date: 20130416
  Transmission Date: 20140414
  Serious: Yes (Hospitalization, Other)
  Sender: FDA-Public Use
  Company Number: ES-OTSUKA-EU-2013-10066

PATIENT
  Age: 82 Year
  Sex: Male

DRUGS (9)
  1. SAMSCA [Suspect]
     Indication: INAPPROPRIATE ANTIDIURETIC HORMONE SECRETION
     Dosage: 15 MG MILLIGRAM(S), QOD
     Route: 048
  2. BISOPROLOL [Concomitant]
  3. ACETYLSALICYLIC ACID [Concomitant]
  4. CLOPIDOGREL [Concomitant]
  5. ATORVASTATIN [Concomitant]
  6. ENALAPRIL [Concomitant]
  7. PANTOPRAZOLE [Concomitant]
  8. DOMPERIDONA [Concomitant]
  9. TAMSULOSIN [Concomitant]

REACTIONS (5)
  - Rapid correction of hyponatraemia [Recovered/Resolved]
  - Condition aggravated [Unknown]
  - Asthenia [Unknown]
  - Malaise [Unknown]
  - Incorrect drug administration rate [Unknown]
